FAERS Safety Report 12297821 (Version 2)
Quarter: 2016Q2

REPORT INFORMATION
  Report Type: Report from Study
  Country: US (occurrence: US)
  Receive Date: 20160422
  Receipt Date: 20160426
  Transmission Date: 20160815
  Serious: Yes (Other)
  Sender: FDA-Public Use
  Company Number: US-PFIZER INC-2016219598

PATIENT

DRUGS (1)
  1. OXAPROZIN. [Suspect]
     Active Substance: OXAPROZIN
     Dosage: UNK

REACTIONS (3)
  - Drug hypersensitivity [Unknown]
  - Drug-induced liver injury [Unknown]
  - Hepatitis [Unknown]
